FAERS Safety Report 8317789-1 (Version None)
Quarter: 2012Q2

REPORT INFORMATION
  Report Type: 
  Country: None (occurrence: None)
  Receive Date: 20120427
  Receipt Date: 20120418
  Transmission Date: 20120825
  Serious: Yes (Other)
  Sender: FDA-Public Use
  Company Number: JP-COVIDIEN/TYCO HEALTHCARE/MALLINCKRODT-T201201481

PATIENT
  Age: 54 Year
  Sex: Male

DRUGS (4)
  1. OXYCODONE HCL [Suspect]
     Dosage: 80 MG, UNK
  2. OXYCODONE HCL [Suspect]
     Indication: CANCER PAIN
     Dosage: UP TO 180 MG, QD
  3. OXYCODONE HCL [Suspect]
     Dosage: 10 MG, QD
  4. OXYCODONE HCL [Suspect]
     Dosage: 100 MG, UNK

REACTIONS (2)
  - COLONIC OBSTRUCTION [None]
  - ACUTE ABDOMEN [None]
